FAERS Safety Report 6603515-0 (Version None)
Quarter: 2010Q1

REPORT INFORMATION
  Report Type: 
  Country: None (occurrence: None)
  Receive Date: 20100226
  Receipt Date: 20091116
  Transmission Date: 20100710
  Serious: No
  Sender: FDA-Public Use
  Company Number: A0802147A

PATIENT
  Age: 56 Year
  Sex: Female

DRUGS (1)
  1. VALTREX [Suspect]
     Indication: DRUG USE FOR UNKNOWN INDICATION
     Dosage: 1G THREE TIMES PER DAY
     Route: 048
     Dates: start: 20090806, end: 20090807

REACTIONS (8)
  - ADVERSE DRUG REACTION [None]
  - CHILLS [None]
  - DIZZINESS [None]
  - FEELING COLD [None]
  - MALAISE [None]
  - NAUSEA [None]
  - REGURGITATION [None]
  - VOMITING [None]
